FAERS Safety Report 15089451 (Version 1)
Quarter: 2018Q2

REPORT INFORMATION
  Report Type: Report from Study
  Country: CA (occurrence: CA)
  Receive Date: 20180629
  Receipt Date: 20180629
  Transmission Date: 20180711
  Serious: Yes (Other)
  Sender: FDA-Public Use
  Company Number: CA-BIOGEN-2018BI00600491

PATIENT
  Age: 53 Year
  Sex: Male

DRUGS (1)
  1. AVONEX [Suspect]
     Active Substance: INTERFERON BETA-1A
     Indication: MULTIPLE SCLEROSIS
     Route: 030
     Dates: start: 20080925, end: 20180526

REACTIONS (5)
  - Pulmonary oedema [Unknown]
  - Thrombophlebitis superficial [Unknown]
  - Pulmonary embolism [Unknown]
  - Pyrexia [Unknown]
  - Injection site induration [Unknown]

NARRATIVE: CASE EVENT DATE: 20180507
